FAERS Safety Report 5519256-7 (Version None)
Quarter: 2007Q4

REPORT INFORMATION
  Report Type: 
  Country: None (occurrence: None)
  Receive Date: 20071116
  Receipt Date: 20071107
  Transmission Date: 20080405
  Serious: Yes (Hospitalization)
  Sender: FDA-Public Use
  Company Number: US-ROCHE-530449

PATIENT
  Age: 60 Year
  Sex: Female

DRUGS (1)
  1. BONIVA [Suspect]
     Indication: OSTEOPOROSIS
     Route: 065

REACTIONS (4)
  - FALL [None]
  - PELVIC FRACTURE [None]
  - TIBIA FRACTURE [None]
  - UPPER LIMB FRACTURE [None]
